FAERS Safety Report 8132355-9 (Version None)
Quarter: 2012Q1

REPORT INFORMATION
  Report Type: 
  Country: None (occurrence: None)
  Receive Date: 20120213
  Receipt Date: 20120206
  Transmission Date: 20120608
  Serious: Yes (Other)
  Sender: FDA-Public Use
  Company Number: US-BAYER-201040721NA

PATIENT
  Age: 45 Year
  Sex: Female
  Weight: 90.703 kg

DRUGS (13)
  1. DROSPIRENONE AND ETHINYL ESTRADIOL [Suspect]
     Indication: CONTRACEPTION
     Dosage: UNK
     Dates: start: 19980101, end: 20090101
  2. SODIUM BUTYRATE [Concomitant]
     Indication: DYSPEPSIA
     Dosage: UNK
     Route: 048
     Dates: start: 20070101, end: 20100101
  3. VITAMIN B-12 [Concomitant]
     Dosage: UNK
     Route: 048
     Dates: start: 20080101
  4. ASPIRIN [Concomitant]
     Dosage: UNK
     Route: 048
     Dates: start: 20060101
  5. SACCHAROMYCES BOULARDII [Concomitant]
     Dosage: UNK
     Route: 048
     Dates: start: 20070101, end: 20100101
  6. MULTITHERA [Concomitant]
     Indication: VITAMIN SUPPLEMENTATION
     Dosage: UNK
     Route: 048
     Dates: start: 20070101, end: 20100101
  7. OSCAL [CALCIUM CARBONATE,VITAMIN D NOS] [Concomitant]
     Dosage: UNK
     Route: 048
     Dates: start: 20080101
  8. YASMIN [Suspect]
     Indication: CONTRACEPTION
     Dosage: UNK
     Dates: start: 19980101, end: 20090101
  9. THERA-BIOTIC [Concomitant]
     Dosage: UNK
     Route: 048
     Dates: start: 20070101, end: 20090101
  10. CHROMIUM PICOLINATE [Concomitant]
     Dosage: UNK
     Route: 048
     Dates: start: 20080101
  11. IRON [Concomitant]
     Route: 048
  12. VITAL ZYMES [Concomitant]
     Indication: DYSPEPSIA
     Dosage: UNK
     Route: 048
     Dates: start: 20070101, end: 20100101
  13. VITAMIN D [Concomitant]
     Dosage: UNK
     Route: 048
     Dates: start: 20080101

REACTIONS (4)
  - ANXIETY [None]
  - DEPRESSION [None]
  - THROMBOPHLEBITIS SUPERFICIAL [None]
  - DEEP VEIN THROMBOSIS [None]
